FAERS Safety Report 8048195-5 (Version None)
Quarter: 2012Q1

REPORT INFORMATION
  Report Type: 
  Country: None (occurrence: None)
  Receive Date: 20120117
  Receipt Date: 20120111
  Transmission Date: 20120608
  Serious: Yes (Other)
  Sender: FDA-Public Use
  Company Number: JP-JNJFOC-20111009550

PATIENT
  Sex: Male

DRUGS (4)
  1. ITRACONAZOLE [Suspect]
     Indication: ONYCHOMYCOSIS
     Dosage: PULSE THERAPY
     Route: 048
     Dates: start: 20111009, end: 20111014
  2. ASPIRIN [Concomitant]
     Indication: ARRHYTHMIA
     Route: 048
  3. ITRACONAZOLE [Suspect]
     Indication: BODY TINEA
     Dosage: PULSE THERAPY
     Route: 048
     Dates: start: 20111009, end: 20111014
  4. SUNRYTHM [Concomitant]
     Indication: ARRHYTHMIA
     Route: 048

REACTIONS (4)
  - GAIT DISTURBANCE [None]
  - PURPURA [None]
  - MYALGIA [None]
  - VASCULITIS [None]
